FAERS Safety Report 7577898-1 (Version None)
Quarter: 2011Q2

REPORT INFORMATION
  Report Type: 
  Country: None (occurrence: None)
  Receive Date: 20110628
  Receipt Date: 20110622
  Transmission Date: 20111010
  Serious: Yes (Hospitalization, Disabling)
  Sender: FDA-Public Use
  Company Number: BR-ROCHE-781056

PATIENT
  Sex: Female

DRUGS (11)
  1. RITUXIMAB [Suspect]
     Indication: RHEUMATOID ARTHRITIS
     Dosage: DOSE: 100MG/10 ML
     Route: 065
     Dates: start: 20090401, end: 20090401
  2. PREDNISONE [Concomitant]
     Dosage: DOSE INCREASED
  3. OMEPRAZOLE [Concomitant]
     Dosage: ONE TABLET IN THE MORNING AND ONE TABLET IN THE NIGHT.
  4. FOLIC ACID [Concomitant]
  5. METHOTREXATE [Concomitant]
  6. ENALAPRIL MALEATE [Concomitant]
  7. PREDNISONE [Concomitant]
  8. CORTISONE ACETATE [Concomitant]
  9. SCAFLAM [Concomitant]
  10. ROXICAM [Concomitant]
  11. TOCILIZUMAB [Suspect]
     Indication: RHEUMATOID ARTHRITIS
     Route: 065
     Dates: start: 20110524

REACTIONS (7)
  - GAIT DISTURBANCE [None]
  - PAIN [None]
  - ARTHRALGIA [None]
  - WEIGHT DECREASED [None]
  - ARTHRITIS [None]
  - RHEUMATOID ARTHRITIS [None]
  - JOINT INJURY [None]
